FAERS Safety Report 9291758 (Version 1)
Quarter: 2013Q2

REPORT INFORMATION
  Report Type: Spontaneous
  Country: US (occurrence: US)
  Receive Date: 20130516
  Receipt Date: 20130516
  Transmission Date: 20140414
  Serious: No
  Sender: FDA-Public Use
  Company Number: US-009507513-1305USA009705

PATIENT
  Age: 30 Year
  Sex: Female

DRUGS (2)
  1. SAPHRIS [Suspect]
     Indication: BIPOLAR I DISORDER
     Dosage: 10 MG, HS
     Route: 060
     Dates: start: 201304, end: 20130513
  2. SAPHRIS [Suspect]
     Dosage: 10 MG, BID
     Route: 060
     Dates: start: 201304, end: 201305

REACTIONS (3)
  - Dysgeusia [Recovering/Resolving]
  - Product taste abnormal [Unknown]
  - Inappropriate schedule of drug administration [Unknown]
